FAERS Safety Report 10206021 (Version 4)
Quarter: 2014Q3

REPORT INFORMATION
  Report Type: Spontaneous
  Country: SE (occurrence: None)
  Receive Date: 20140527
  Receipt Date: 20140915
  Transmission Date: 20150326
  Serious: Yes (Hospitalization, Other)
  Sender: FDA-Public Use
  Company Number: 2014SE003299

PATIENT
  Sex: Female

DRUGS (4)
  1. CYMEVENE [Concomitant]
     Active Substance: GANCICLOVIR
  2. ICLUSIG [Suspect]
     Active Substance: PONATINIB
     Indication: CHROMOSOME ANALYSIS ABNORMAL
     Route: 048
     Dates: start: 201403
  3. ICLUSIG [Suspect]
     Active Substance: PONATINIB
     Indication: ACUTE LYMPHOCYTIC LEUKAEMIA
     Route: 048
     Dates: start: 201403
  4. METHOTREXATE (METHOTREXATE SODIUM) [Concomitant]
     Active Substance: METHOTREXATE SODIUM

REACTIONS (8)
  - Leukaemia recurrent [None]
  - Anal sphincter atony [None]
  - Viral infection [None]
  - Convulsions local [None]
  - Myelitis [None]
  - Aphasia [None]
  - Central nervous system leukaemia [None]
  - Muscular weakness [None]

NARRATIVE: CASE EVENT DATE: 201405
